FAERS Safety Report 24066062 (Version 1)
Quarter: 2024Q3

REPORT INFORMATION
  Report Type: Spontaneous
  Country: GR (occurrence: GR)
  Receive Date: 20240709
  Receipt Date: 20240709
  Transmission Date: 20241017
  Serious: Yes (Death)
  Sender: PFIZER
  Company Number: GR-PFIZER INC-PV202400087667

PATIENT
  Age: 36 Year
  Sex: Male

DRUGS (3)
  1. DOXORUBICIN HYDROCHLORIDE [Suspect]
     Active Substance: DOXORUBICIN HYDROCHLORIDE
     Indication: Plasma cell myeloma
     Dosage: 96-HR CONTINUOUS INFUSION
     Route: 042
     Dates: start: 19991220
  2. VINCRISTINE SULFATE [Suspect]
     Active Substance: VINCRISTINE SULFATE
     Indication: Plasma cell myeloma
     Dosage: 96-HR CONTINUOUS INFUSION
     Route: 042
     Dates: start: 19991220
  3. DEXAMETHASONE [Suspect]
     Active Substance: DEXAMETHASONE
     Indication: Plasma cell myeloma
     Dosage: UNK
     Route: 048
     Dates: start: 19991220

REACTIONS (3)
  - Light chain disease [Fatal]
  - Drug-induced liver injury [Fatal]
  - Jaundice [Fatal]

NARRATIVE: CASE EVENT DATE: 20000117
